FAERS Safety Report 7555210-1 (Version None)
Quarter: 2011Q2

REPORT INFORMATION
  Report Type: 
  Country: None (occurrence: None)
  Receive Date: 20110617
  Receipt Date: 20110606
  Transmission Date: 20111010
  Serious: Yes (Hospitalization)
  Sender: FDA-Public Use
  Company Number: PHFR2011GB02649

PATIENT
  Sex: Female

DRUGS (4)
  1. CLOZAPINE [Suspect]
     Dosage: 400 MG DAILY
     Route: 048
     Dates: start: 20110418
  2. MIRTAZAPINE [Concomitant]
     Indication: DEPRESSION
     Dosage: 45 MG DAILY
     Route: 048
  3. AMITRIPTYLINE HYDROCHLORIDE [Concomitant]
     Dosage: 25 MG DAILY
     Route: 048
  4. CLOZAPINE [Suspect]
     Indication: SCHIZOPHRENIA
     Dosage: 400 MG DAILY
     Route: 048
     Dates: start: 20061120, end: 20110413

REACTIONS (3)
  - SELF-INJURIOUS IDEATION [None]
  - SCHIZOPHRENIA [None]
  - MENTAL IMPAIRMENT [None]
